FAERS Safety Report 21251445 (Version 1)
Quarter: 2022Q3

REPORT INFORMATION
  Report Type: Spontaneous
  Country: GB (occurrence: GB)
  Receive Date: 20220825
  Receipt Date: 20220825
  Transmission Date: 20221026
  Serious: Yes (Hospitalization, Other)
  Sender: FDA-Public Use
  Company Number: GB-JNJFOC-20220835402

PATIENT
  Age: 54 Year
  Sex: Male

DRUGS (4)
  1. STELARA [Suspect]
     Active Substance: USTEKINUMAB
     Indication: Psoriasis
     Dosage: PASI {2 WITHIN 16 WEEKS)
     Route: 058
     Dates: start: 2015
  2. ACITRETIN [Concomitant]
     Active Substance: ACITRETIN
  3. APREMILAST [Concomitant]
     Active Substance: APREMILAST
  4. BIKTARVY [Concomitant]
     Active Substance: BICTEGRAVIR SODIUM\EMTRICITABINE\TENOFOVIR ALAFENAMIDE FUMARATE

REACTIONS (4)
  - HIV infection [Unknown]
  - Hepatitis B [Unknown]
  - Erythrodermic psoriasis [Not Recovered/Not Resolved]
  - Depression [Unknown]

NARRATIVE: CASE EVENT DATE: 20160101
